FAERS Safety Report 8894898 (Version 2)
Quarter: 2012Q4

REPORT INFORMATION
  Report Type: 
  Country: IT (occurrence: IT)
  Receive Date: 20121108
  Receipt Date: 20121211
  Transmission Date: 20130627
  Serious: Yes (Other)
  Sender: FDA-Public Use
  Company Number: IT-MYLANLABS-2012S1022499

PATIENT
  Age: 45 Year
  Sex: Female

DRUGS (6)
  1. LEVOFLOXACIN [Suspect]
     Indication: ABSCESS
     Route: 048
     Dates: start: 20120831, end: 20120907
  2. LEVOFLOXACIN [Suspect]
     Indication: SURGERY
     Route: 048
     Dates: start: 20120831, end: 20120907
  3. LEVOFLOXACIN [Suspect]
     Indication: ABSCESS
     Route: 048
     Dates: start: 20120908, end: 20120916
  4. LEVOFLOXACIN [Suspect]
     Indication: SURGERY
     Route: 048
     Dates: start: 20120908, end: 20120916
  5. LEVOFLOXACIN [Suspect]
     Indication: ABSCESS
     Route: 048
     Dates: start: 20121007, end: 20121012
  6. LEVOFLOXACIN [Suspect]
     Indication: SURGERY
     Route: 048
     Dates: start: 20121007, end: 20121012

REACTIONS (6)
  - Blood bilirubin increased [Unknown]
  - Dysgeusia [Unknown]
  - Hypoglycaemia [Unknown]
  - Neurological symptom [Unknown]
  - Tendon pain [Unknown]
  - Erythema [Unknown]
